FAERS Safety Report 4522008-8 (Version None)
Quarter: 2004Q4

REPORT INFORMATION
  Report Type: 
  Country: None (occurrence: None)
  Receive Date: 20041207
  Receipt Date: 20041207
  Transmission Date: 20050328
  Serious: Yes (Other)
  Sender: FDA-Public Use
  Company Number: None

PATIENT
  Sex: Male

DRUGS (25)
  1. DEFINITY [Suspect]
     Indication: ECHOCARDIOGRAM
     Dates: start: 20040818, end: 20040818
  2. FOLIC ACID [Concomitant]
  3. LORATADINE [Concomitant]
  4. ATARAX [Concomitant]
  5. MAG OX [Concomitant]
  6. LISINOPRIL [Concomitant]
  7. AMIODARONE HCL [Concomitant]
  8. METOPROLOL [Concomitant]
  9. CLOPIDOGREL [Concomitant]
  10. ASPIRIN [Concomitant]
  11. THIAMINE [Concomitant]
  12. TERAZOSIN HCL [Concomitant]
  13. LOVASTATIN [Concomitant]
  14. ISOSORBIDE DINITRATE [Concomitant]
  15. INSULIN [Concomitant]
  16. GLYBURIDE [Concomitant]
  17. FUROSEMIDE [Concomitant]
  18. KCL TAB [Concomitant]
  19. ATROVENT NASAL [Concomitant]
  20. FLUNISOLIDE NASAL [Concomitant]
  21. TRETINOIN CREAM [Concomitant]
  22. GABAPENTIN [Concomitant]
  23. APAP TAB [Concomitant]
  24. VIT B12 [Concomitant]
  25. SELECT PROTOCOL MEDS [Concomitant]

REACTIONS (2)
  - ARTHRALGIA [None]
  - BACK PAIN [None]
